FAERS Safety Report 17676951 (Version 1)
Quarter: 2020Q2

REPORT INFORMATION
  Report Type: Spontaneous
  Country: GB (occurrence: GB)
  Receive Date: 20200416
  Receipt Date: 20200416
  Transmission Date: 20200714
  Serious: Yes (Hospitalization)
  Sender: FDA-Public Use
  Company Number: NVSC2020GB102641

PATIENT
  Age: 55 Year
  Sex: Female
  Weight: 54 kg

DRUGS (2)
  1. ATORVASTATIN CALCIUM. [Concomitant]
     Active Substance: ATORVASTATIN CALCIUM
     Indication: PRODUCT USED FOR UNKNOWN INDICATION
     Dosage: UNK
     Route: 065
  2. BISOPROLOL FUMARATE. [Suspect]
     Active Substance: BISOPROLOL FUMARATE
     Indication: ANGINA UNSTABLE
     Dosage: 2.5 MG
     Route: 048
     Dates: start: 20191224

REACTIONS (4)
  - Muscle spasms [Recovered/Resolved]
  - Speech disorder [Unknown]
  - Sensory loss [Unknown]
  - Hand deformity [Recovered/Resolved]

NARRATIVE: CASE EVENT DATE: 20191228
